FAERS Safety Report 5596062-9 (Version None)
Quarter: 2008Q1

REPORT INFORMATION
  Report Type: 
  Country: None (occurrence: None)
  Receive Date: 20080118
  Receipt Date: 20080110
  Transmission Date: 20080703
  Serious: Yes (Other)
  Sender: FDA-Public Use
  Company Number: BR-ROCHE-541294

PATIENT
  Age: 29 Year
  Sex: Female

DRUGS (1)
  1. ROACUTAN [Suspect]
     Indication: ACNE
     Route: 065
     Dates: start: 20000101, end: 20000101

REACTIONS (1)
  - PITUITARY TUMOUR BENIGN [None]
